FAERS Safety Report 4840501-5 (Version None)
Quarter: 2005Q4

REPORT INFORMATION
  Report Type: 
  Country: None (occurrence: None)
  Receive Date: 20051130
  Receipt Date: 20050825
  Transmission Date: 20060501
  Serious: No
  Sender: FDA-Public Use
  Company Number: US-BRISTOL-MYERS SQUIBB COMPANY-13090188

PATIENT
  Age: 57 Year
  Sex: Female
  Weight: 81 kg

DRUGS (6)
  1. ERBITUX [Suspect]
     Indication: COLON CANCER
     Route: 042
  2. IRINOTECAN HCL [Concomitant]
  3. ALOXI [Concomitant]
  4. DECADRON [Concomitant]
  5. COZAAR [Concomitant]
  6. ITRACONAZOLE [Concomitant]

REACTIONS (4)
  - DYSPHAGIA [None]
  - DYSPHONIA [None]
  - DYSPNOEA [None]
  - INCREASED UPPER AIRWAY SECRETION [None]
